FAERS Safety Report 5648278-0 (Version None)
Quarter: 2008Q1

REPORT INFORMATION
  Report Type: 
  Country: None (occurrence: None)
  Receive Date: 20080229
  Receipt Date: 20080216
  Transmission Date: 20080703
  Serious: Yes (Death)
  Sender: FDA-Public Use
  Company Number: 2008015137

PATIENT
  Sex: Male

DRUGS (1)
  1. FRAGMIN [Suspect]
     Indication: THROMBOSIS PROPHYLAXIS
     Dosage: 5000 I.U. (5000 I.U., QD), SUBCUTANEOUS
     Route: 058
     Dates: start: 20080203

REACTIONS (2)
  - PLEURAL HAEMORRHAGE [None]
  - POST PROCEDURAL HAEMORRHAGE [None]
